FAERS Safety Report 8381633-7 (Version None)
Quarter: 2012Q2

REPORT INFORMATION
  Report Type: 
  Country: None (occurrence: None)
  Receive Date: 20120524
  Receipt Date: 20120515
  Transmission Date: 20120825
  Serious: No
  Sender: FDA-Public Use
  Company Number: US-ASTRAZENECA-2011SE11598

PATIENT
  Age: 50 Year
  Sex: Male

DRUGS (2)
  1. SEROQUEL [Suspect]
     Route: 048
  2. SEROQUEL [Suspect]
     Indication: TACHYPHRENIA
     Route: 048

REACTIONS (3)
  - TINNITUS [None]
  - MEMORY IMPAIRMENT [None]
  - ATTENTION DEFICIT/HYPERACTIVITY DISORDER [None]
